FAERS Safety Report 5591047-0 (Version None)
Quarter: 2008Q1

REPORT INFORMATION
  Report Type: 
  Country: None (occurrence: None)
  Receive Date: 20080115
  Receipt Date: 20080108
  Transmission Date: 20080703
  Serious: Yes (Hospitalization)
  Sender: FDA-Public Use
  Company Number: PHRM2008FR00521

PATIENT
  Age: 77 Year
  Sex: Male

DRUGS (2)
  1. TEGRETOL [Suspect]
     Dosage: 400 MG, QD
     Route: 065
     Dates: start: 20070225, end: 20070515
  2. HYTACAND [Concomitant]

REACTIONS (2)
  - COLITIS [None]
  - DIARRHOEA [None]
